FAERS Safety Report 9256474 (Version 2)
Quarter: 2013Q3

REPORT INFORMATION
  Report Type: Spontaneous
  Country: US (occurrence: US)
  Receive Date: 20130426
  Receipt Date: 20130703
  Transmission Date: 20140515
  Serious: No
  Sender: FDA-Public Use
  Company Number: US-BIOGENIDEC-2013BI036675

PATIENT
  Sex: Female
  Weight: 84 kg

DRUGS (4)
  1. AVONEX [Suspect]
     Indication: MULTIPLE SCLEROSIS
     Route: 030
     Dates: end: 20080810
  2. AUBAGIO [Concomitant]
     Indication: MULTIPLE SCLEROSIS
  3. NORTRIPTYLINE [Concomitant]
  4. AMITRIPTYLINE [Concomitant]
     Indication: SLEEP DISORDER

REACTIONS (8)
  - Pulmonary mass [Unknown]
  - Dermal cyst [Unknown]
  - Anaemia vitamin B12 deficiency [Unknown]
  - Hypertension [Unknown]
  - Goitre [Unknown]
  - Gastrooesophageal reflux disease [Unknown]
  - Bronchitis [Unknown]
  - Sinusitis [Unknown]
